FAERS Safety Report 15488620 (Version 2)
Quarter: 2018Q4

REPORT INFORMATION
  Report Type: Spontaneous
  Country: CA (occurrence: CA)
  Receive Date: 20181011
  Receipt Date: 20181017
  Transmission Date: 20190205
  Serious: Yes (Hospitalization)
  Sender: FDA-Public Use
  Company Number: CA-PFIZER INC-2018401290

PATIENT
  Age: 23 Year
  Sex: Female

DRUGS (19)
  1. PREDNISONE. [Concomitant]
     Active Substance: PREDNISONE
     Dosage: TAPERED BY 2.5MG WEEKLY UNTIL REACHING 10MG
     Dates: start: 20171022, end: 20171211
  2. PREDNISONE. [Concomitant]
     Active Substance: PREDNISONE
     Dosage: 10 MG, UNK
     Dates: start: 20171211, end: 20180114
  3. PREDNISONE. [Concomitant]
     Active Substance: PREDNISONE
     Dosage: TAPERED BY 5MG WEEKLY UNTIL AT 20MG
     Dates: start: 20180204, end: 20180304
  4. AZATHIOPRINE. [Concomitant]
     Active Substance: AZATHIOPRINE
     Dosage: 3 DF(50 MG TABLETS), DAILY
  5. PREDNISONE. [Concomitant]
     Active Substance: PREDNISONE
     Dosage: 7.5 MG, UNK
     Dates: start: 20180115, end: 20180117
  6. ASACOL HD [Concomitant]
     Active Substance: MESALAMINE
     Dosage: 3 DF(800 MG TABLETS), 2X/DAY
     Route: 048
  7. ALESSE 28 [Suspect]
     Active Substance: ETHINYL ESTRADIOL\LEVONORGESTREL
     Indication: CONTRACEPTION
     Dosage: 1 DF(TABLET) , DAILY
  8. ASACOL HD [Concomitant]
     Active Substance: MESALAMINE
     Dosage: 4.8 G, 1X/DAY
     Route: 048
  9. PENTASA [Concomitant]
     Active Substance: MESALAMINE
     Dosage: UNK UNK, AS NEEDED INTERMITTENTLY
  10. VERSED [Concomitant]
     Active Substance: MIDAZOLAM HYDROCHLORIDE
     Indication: SEDATION
     Dosage: 5 MG, UNK
     Dates: start: 20180906, end: 20180906
  11. FENTANYL. [Concomitant]
     Active Substance: FENTANYL
     Indication: SEDATION
     Dosage: 100 UG, UNK
     Dates: start: 20180906, end: 20180906
  12. PREDNISONE. [Concomitant]
     Active Substance: PREDNISONE
     Dosage: 30 MG, UNK
     Dates: start: 20171002, end: 20171022
  13. VENOFER [Concomitant]
     Active Substance: IRON SUCROSE
  14. AZATHIOPRINE. [Concomitant]
     Active Substance: AZATHIOPRINE
     Dosage: 150 MG,(2MG/KG) UNK
  15. 5-ASA [Concomitant]
     Active Substance: MESALAMINE
     Dosage: UNK
  16. SPIRONOLACTONE. [Concomitant]
     Active Substance: SPIRONOLACTONE
     Dosage: 2 DF(25 MG TABLETS), 2X/DAY
     Route: 048
  17. SALOFALK [MESALAZINE] [Concomitant]
     Dosage: UNK UNK, AS NEEDED INTERMITTENTLY
  18. PREDNISONE. [Concomitant]
     Active Substance: PREDNISONE
     Dosage: 40 MG, UNK
     Dates: start: 20180118, end: 20180204
  19. PREDNISONE. [Concomitant]
     Active Substance: PREDNISONE
     Dosage: STARTING AT 17.5MG, AND TAPERING WEEKLY BY 2.5MG UNTIL COMPLETED
     Dates: start: 20180305, end: 20180422

REACTIONS (2)
  - Condition aggravated [Recovering/Resolving]
  - Fatigue [Unknown]
